FAERS Safety Report 23777477 (Version 1)
Quarter: 2024Q2

REPORT INFORMATION
  Report Type: Spontaneous
  Country: US (occurrence: US)
  Receive Date: 20240424
  Receipt Date: 20240424
  Transmission Date: 20240715
  Serious: Yes (Other)
  Sender: FDA-Public Use
  Company Number: US-DRL-USA-LIT/USA/24/0005959

PATIENT
  Age: 15 Year
  Sex: Female

DRUGS (2)
  1. IMATINIB [Suspect]
     Active Substance: IMATINIB
     Indication: Neurofibromatosis
  2. TRAMETINIB [Suspect]
     Active Substance: TRAMETINIB
     Indication: Neurofibroma

REACTIONS (3)
  - Disease progression [Unknown]
  - Neurofibromatosis [Unknown]
  - Treatment failure [Unknown]
